FAERS Safety Report 5120966-4 (Version None)
Quarter: 2006Q4

REPORT INFORMATION
  Report Type: 
  Country: None (occurrence: None)
  Receive Date: 20061003
  Receipt Date: 20061003
  Transmission Date: 20070319
  Serious: Yes (Hospitalization)
  Sender: FDA-Public Use
  Company Number: None

PATIENT
  Age: 26 Year
  Sex: Male
  Weight: 91.6266 kg

DRUGS (1)
  1. NAPROXEN [Suspect]
     Indication: ANTIINFLAMMATORY THERAPY
     Dosage: 1 TABLET 2 TIMES A DAY

REACTIONS (2)
  - BLINDNESS TRANSIENT [None]
  - DRUG HYPERSENSITIVITY [None]
